FAERS Safety Report 12412508 (Version 1)
Quarter: 2016Q2

REPORT INFORMATION
  Report Type: Spontaneous
  Country: LT (occurrence: LT)
  Receive Date: 20160527
  Receipt Date: 20160527
  Transmission Date: 20160815
  Serious: Yes (Hospitalization, Other)
  Sender: FDA-Public Use
  Company Number: LT-AMGEN-LTUSP2016066870

PATIENT
  Age: 72 Year
  Sex: Female
  Weight: 80 kg

DRUGS (1)
  1. PROCORALAN [Suspect]
     Active Substance: IVABRADINE
     Indication: HEART RATE IRREGULAR
     Dosage: 7.5 MG, BID
     Route: 048
     Dates: start: 20160106, end: 20160430

REACTIONS (3)
  - Bradycardia [Recovered/Resolved]
  - Incorrect dose administered [Recovered/Resolved]
  - Presyncope [Recovered/Resolved]

NARRATIVE: CASE EVENT DATE: 20160430
